FAERS Safety Report 17665409 (Version 1)
Quarter: 2020Q2

REPORT INFORMATION
  Report Type: Spontaneous
  Country: JP (occurrence: JP)
  Receive Date: 20200414
  Receipt Date: 20200414
  Transmission Date: 20200713
  Serious: Yes (Other)
  Sender: FDA-Public Use
  Company Number: JP-GEHPL-2020JSU001378AA

PATIENT

DRUGS (11)
  1. OMNIPAQUE [Suspect]
     Active Substance: IOHEXOL
     Indication: PERCUTANEOUS CORONARY INTERVENTION
  2. LANSOPRAZOLE. [Concomitant]
     Active Substance: LANSOPRAZOLE
  3. ATORVASTATIN [Concomitant]
     Active Substance: ATORVASTATIN
  4. LOSARTAN POTASSIUM. [Concomitant]
     Active Substance: LOSARTAN POTASSIUM
  5. OMNIPAQUE [Suspect]
     Active Substance: IOHEXOL
     Indication: ANGIOGRAM
     Dosage: UNK UNK, SINGLE
     Route: 022
  6. PREDNISOLONE. [Concomitant]
     Active Substance: PREDNISOLONE
  7. MIZORIBINE [Concomitant]
     Active Substance: MIZORIBINE
  8. MINODRONIC ACID [Concomitant]
     Active Substance: MINODRONIC ACID
  9. OMNIPAQUE [Suspect]
     Active Substance: IOHEXOL
     Indication: ANGINA UNSTABLE
  10. ABATACEPT [Concomitant]
     Active Substance: ABATACEPT
     Route: 058
  11. MILLISROL [Concomitant]
     Dosage: 2 MG, SINGLE
     Route: 022

REACTIONS (2)
  - Anaphylactic shock [Recovered/Resolved]
  - Kounis syndrome [Recovered/Resolved]
